FAERS Safety Report 6999742-3 (Version None)
Quarter: 2010Q3

REPORT INFORMATION
  Report Type: 
  Country: None (occurrence: None)
  Receive Date: 20100920
  Receipt Date: 20100115
  Transmission Date: 20110219
  Serious: No
  Sender: FDA-Public Use
  Company Number: US-ASTRAZENECA-2010SE02029

PATIENT
  Age: 32 Year
  Sex: Female
  Weight: 63.5 kg

DRUGS (4)
  1. SEROQUEL [Suspect]
     Indication: INSOMNIA
     Route: 048
     Dates: start: 20090301
  2. SEROQUEL [Suspect]
     Indication: BIPOLAR DISORDER
     Route: 048
     Dates: start: 20090301
  3. SEROQUEL [Suspect]
     Route: 048
     Dates: start: 20100114
  4. SEROQUEL [Suspect]
     Route: 048
     Dates: start: 20100114

REACTIONS (6)
  - ANXIETY [None]
  - DRUG DOSE OMISSION [None]
  - INSOMNIA [None]
  - NASOPHARYNGITIS [None]
  - PALPITATIONS [None]
  - PANIC ATTACK [None]
